FAERS Safety Report 20510788 (Version 3)
Quarter: 2022Q2

REPORT INFORMATION
  Report Type: Report from Study
  Country: US (occurrence: US)
  Receive Date: 20220224
  Receipt Date: 20220615
  Transmission Date: 20220721
  Serious: No
  Sender: FDA-Public Use
  Company Number: US-NOVARTISTESTPH-NVSC2022US041617

PATIENT
  Age: 65 Year
  Sex: Male

DRUGS (1)
  1. ENTRESTO [Suspect]
     Active Substance: SACUBITRIL\VALSARTAN
     Indication: Product used for unknown indication
     Dosage: 100 MG (49/51), BID
     Route: 065
     Dates: start: 20220208

REACTIONS (9)
  - Weight increased [Unknown]
  - Pollakiuria [Unknown]
  - Peripheral swelling [Recovered/Resolved]
  - Back pain [Unknown]
  - Heart sounds abnormal [Unknown]
  - Arthralgia [Not Recovered/Not Resolved]
  - Gait disturbance [Unknown]
  - Fatigue [Unknown]
  - Dizziness [Unknown]

NARRATIVE: CASE EVENT DATE: 20220201
